FAERS Safety Report 19677030 (Version 1)
Quarter: 2021Q3

REPORT INFORMATION
  Report Type: Spontaneous
  Country: PL (occurrence: PL)
  Receive Date: 20210809
  Receipt Date: 20210809
  Transmission Date: 20211014
  Serious: Yes (Other)
  Sender: FDA-Public Use
  Company Number: PL-PFIZER INC-202100947112

PATIENT
  Age: 73 Year
  Sex: Male
  Weight: 65 kg

DRUGS (1)
  1. SUTENT [Suspect]
     Active Substance: SUNITINIB MALATE
     Indication: RENAL CELL CARCINOMA
     Dosage: 50 MG
     Route: 048

REACTIONS (11)
  - Chronic kidney disease [Unknown]
  - Taste disorder [Unknown]
  - Spinal pain [Unknown]
  - Neutrophilia [Unknown]
  - Dysgeusia [Unknown]
  - Hypoglycaemia [Unknown]
  - Varicose vein [Unknown]
  - Dry mouth [Unknown]
  - Back pain [Unknown]
  - Blood pressure increased [Unknown]
  - Alanine aminotransferase increased [Unknown]
